FAERS Safety Report 5027021-2 (Version None)
Quarter: 2006Q2

REPORT INFORMATION
  Report Type: 
  Country: None (occurrence: None)
  Receive Date: 20060615
  Receipt Date: 19970227
  Transmission Date: 20061013
  Serious: Yes (Other)
  Sender: FDA-Public Use
  Company Number: DE-BRISTOL-MYERS SQUIBB COMPANY-13408364

PATIENT
  Age: 74 Year
  Sex: Male
  Weight: 101 kg

DRUGS (3)
  1. TAXOL [Suspect]
     Indication: BRONCHIAL CARCINOMA
     Route: 042
     Dates: start: 19970120, end: 19970224
  2. CARBOPLATIN [Suspect]
     Indication: BRONCHIAL CARCINOMA
     Dates: start: 19970120, end: 19970224
  3. RADIOTHERAPY [Concomitant]
     Indication: BRONCHIAL CARCINOMA
     Dates: end: 19970213

REACTIONS (4)
  - DYSPNOEA [None]
  - GENERAL PHYSICAL HEALTH DETERIORATION [None]
  - LUNG INFILTRATION [None]
  - MALIGNANT NEOPLASM PROGRESSION [None]
